FAERS Safety Report 7914425-0 (Version None)
Quarter: 2011Q4

REPORT INFORMATION
  Report Type: 
  Country: None (occurrence: None)
  Receive Date: 20111115
  Receipt Date: 20111103
  Transmission Date: 20120403
  Serious: Yes (Death, Other)
  Sender: FDA-Public Use
  Company Number: ES-CELGENEUS-144-21880-11110269

PATIENT

DRUGS (3)
  1. REVLIMID [Suspect]
     Dosage: 25 MG OR REDUCED DOSE
     Route: 048
     Dates: end: 20110301
  2. REVLIMID [Suspect]
     Indication: MULTIPLE MYELOMA
     Dosage: 25 MILLIGRAM
     Route: 048
  3. DEXAMETHASONE [Suspect]
     Indication: MULTIPLE MYELOMA
     Dosage: 4.2857 MILLIGRAM
     Route: 065

REACTIONS (7)
  - RENAL FAILURE [None]
  - ADVERSE EVENT [None]
  - THROMBOCYTOPENIA [None]
  - NEUTROPENIA [None]
  - NO THERAPEUTIC RESPONSE [None]
  - ANAEMIA [None]
  - DEATH [None]
